FAERS Safety Report 4482767-X (Version None)
Quarter: 2004Q3

REPORT INFORMATION
  Report Type: 
  Country: None (occurrence: None)
  Receive Date: 20040921
  Receipt Date: 20040524
  Transmission Date: 20050211
  Serious: Yes (Hospitalization)
  Sender: FDA-Public Use
  Company Number: 163-20785-04050587 (0)

PATIENT
  Age: 56 Year
  Sex: Male

DRUGS (10)
  1. THALOMID [Suspect]
     Indication: MULTIPLE MYELOMA
     Dosage: 200 MG, DAILY, ORAL
     Route: 048
     Dates: start: 20040425, end: 20040428
  2. BORTEZOMIB [Suspect]
     Indication: MULTIPLE MYELOMA
     Dosage: 1.9 MG, INTRAVENOUS
     Route: 042
     Dates: start: 20040421
  3. BORTEZOMIB [Suspect]
     Indication: MULTIPLE MYELOMA
     Dosage: 1.9 MG, INTRAVENOUS
     Route: 042
     Dates: start: 20040424
  4. BORTEZOMIB [Suspect]
     Indication: MULTIPLE MYELOMA
     Dosage: 1.9 MG, INTRAVENOUS
     Route: 042
     Dates: start: 20040428
  5. BORTEZOMIB [Suspect]
     Indication: MULTIPLE MYELOMA
     Dosage: 1.9 MG, INTRAVENOUS
     Route: 042
     Dates: start: 20040501
  6. DEXAMETHASONE [Suspect]
     Indication: MULTIPLE MYELOMA
     Dosage: 40 MG, DAILY, ORAL
     Route: 048
     Dates: start: 20040424, end: 20040427
  7. CISPLATIN [Suspect]
     Indication: MULTIPLE MYELOMA
     Dosage: 19 MG, DAILY, INTRAVENOUS
     Route: 042
     Dates: start: 20040424, end: 20040427
  8. ADRIAMYCIN PFS [Suspect]
     Indication: MULTIPLE MYELOMA
     Dosage: 19 MG, DAILY, INTRAVENOUS
     Route: 042
     Dates: start: 20040424, end: 20040427
  9. CYCLOPHOSPHAMIDE [Suspect]
     Indication: MULTIPLE MYELOMA
     Dosage: 768 MG, DAILY, INTRAVENOUS
     Route: 042
     Dates: start: 20040424, end: 20040427
  10. ETOPOSIDE [Suspect]
     Indication: MULTIPLE MYELOMA
     Dosage: 77 MG, DAILY, INTRAVENOUS
     Route: 042
     Dates: start: 20040424, end: 20040427

REACTIONS (7)
  - ASTHENIA [None]
  - CENTRAL LINE INFECTION [None]
  - NAUSEA [None]
  - PANCYTOPENIA [None]
  - PNEUMONIA [None]
  - PYREXIA [None]
  - RENAL IMPAIRMENT [None]
